FAERS Safety Report 5901322-5 (Version None)
Quarter: 2008Q3

REPORT INFORMATION
  Report Type: 
  Country: None (occurrence: None)
  Receive Date: 20080929
  Receipt Date: 20080912
  Transmission Date: 20090109
  Serious: Yes (Other)
  Sender: FDA-Public Use
  Company Number: US-BAYER-200833504NA

PATIENT

DRUGS (1)
  1. AVELOX [Suspect]
     Indication: DRUG USE FOR UNKNOWN INDICATION

REACTIONS (4)
  - EMOTIONAL DISTRESS [None]
  - GENERAL PHYSICAL CONDITION ABNORMAL [None]
  - HEPATIC STEATOSIS [None]
  - PANCREATITIS [None]
